FAERS Safety Report 6207248-4 (Version None)
Quarter: 2009Q2

REPORT INFORMATION
  Report Type: 
  Country: None (occurrence: None)
  Receive Date: 20090528
  Receipt Date: 20090224
  Transmission Date: 20091009
  Serious: Yes (Other)
  Sender: FDA-Public Use
  Company Number: FR-PFIZER INC-2009175783

PATIENT
  Sex: Female

DRUGS (7)
  1. SOLU-MEDROL [Suspect]
     Route: 042
     Dates: start: 20081118, end: 20081120
  2. PREDNISONE [Suspect]
     Route: 048
     Dates: start: 20080624
  3. ETANERCEPT [Suspect]
     Route: 058
     Dates: end: 20081121
  4. ARAVA [Suspect]
     Route: 048
     Dates: start: 20080514
  5. ANAFRANIL [Suspect]
     Route: 048
     Dates: start: 20080301
  6. ALPRAZOLAM [Concomitant]
  7. ALENDRONATE SODIUM [Concomitant]

REACTIONS (1)
  - LUNG DISORDER [None]
